FAERS Safety Report 6630834-4 (Version None)
Quarter: 2010Q1

REPORT INFORMATION
  Report Type: 
  Country: None (occurrence: None)
  Receive Date: 20100311
  Receipt Date: 20100303
  Transmission Date: 20100710
  Serious: Yes (Hospitalization, Other)
  Sender: FDA-Public Use
  Company Number: US-BAXTER-2010BH005626

PATIENT
  Age: 77 Year
  Sex: Male

DRUGS (1)
  1. AMINO ACIDS NOS [Suspect]
     Indication: SMALL INTESTINAL OBSTRUCTION
     Route: 042
     Dates: start: 20100302, end: 20100302

REACTIONS (2)
  - BLOOD PRESSURE DECREASED [None]
  - DRUG ADMINISTRATION ERROR [None]
